FAERS Safety Report 25995742 (Version 1)
Quarter: 2025Q4

REPORT INFORMATION
  Report Type: Spontaneous
  Country: US (occurrence: None)
  Receive Date: 20251104
  Receipt Date: 20251104
  Transmission Date: 20260118
  Serious: Yes (Hospitalization)
  Sender: FDA-CTU
  Company Number: None

PATIENT
  Sex: Female

DRUGS (7)
  1. XOLAIR [Suspect]
     Active Substance: OMALIZUMAB
     Indication: Asthma
     Dosage: INJECT 1 SYRINGE UNDER THE SKIN (SUBCUTANEOUS INJECTION) EVERY FOUR WEEKS???
     Route: 058
     Dates: start: 20190404
  2. AMILORIDE [Concomitant]
     Active Substance: AMILORIDE
  3. OSCAL [Concomitant]
     Active Substance: CALCIUM CARBONATE
  4. THIAMINE HYDROCHLORIDE [Concomitant]
     Active Substance: THIAMINE HYDROCHLORIDE
  5. VITAMIN C [Concomitant]
     Active Substance: ASCORBIC ACID
  6. VITAMIN D [Concomitant]
     Active Substance: VITAMIN D NOS
  7. ZINC SULFATE [Concomitant]
     Active Substance: ZINC SULFATE

REACTIONS (2)
  - Groin pain [None]
  - Drug ineffective [None]
